FAERS Safety Report 17025156 (Version 1)
Quarter: 2019Q4

REPORT INFORMATION
  Report Type: Other
  Country: CA (occurrence: CA)
  Receive Date: 20191113
  Receipt Date: 20191113
  Transmission Date: 20200122
  Serious: Yes (Hospitalization, Disabling)
  Sender: FDA-Public Use
  Company Number: CA-PFIZER INC-2019479709

PATIENT
  Age: 65 Year
  Sex: Male

DRUGS (4)
  1. CAPECITABINE. [Suspect]
     Active Substance: CAPECITABINE
     Indication: RECTAL ADENOCARCINOMA
     Dosage: 1100 MG, 3X/DAY
     Route: 048
  2. LEUCOVORIN. [Suspect]
     Active Substance: LEUCOVORIN
     Indication: RECTAL ADENOCARCINOMA
     Dosage: UNK
     Route: 042
  3. FLUOROURACIL. [Suspect]
     Active Substance: FLUOROURACIL
     Indication: RECTAL ADENOCARCINOMA
     Dosage: UNK
     Route: 042
  4. OXALIPLATIN. [Suspect]
     Active Substance: OXALIPLATIN
     Indication: RECTAL ADENOCARCINOMA
     Dosage: UNK
     Route: 042

REACTIONS (19)
  - Magnetic resonance imaging abnormal [Unknown]
  - Posture abnormal [Unknown]
  - Skin ulcer [Unknown]
  - Gait disturbance [Unknown]
  - Lasegue^s test positive [Unknown]
  - Neuropathy peripheral [Unknown]
  - Pain in extremity [Unknown]
  - Skin abrasion [Unknown]
  - Erythema [Unknown]
  - Motor dysfunction [Unknown]
  - Muscular weakness [Unknown]
  - Reflexes abnormal [Unknown]
  - Skin exfoliation [Unknown]
  - Groin pain [Unknown]
  - Myositis [Unknown]
  - Perianal erythema [Unknown]
  - Dermatitis [Unknown]
  - Electromyogram abnormal [Unknown]
  - Pain [Unknown]
